FAERS Safety Report 6008506-9 (Version None)
Quarter: 2008Q4

REPORT INFORMATION
  Report Type: 
  Country: None (occurrence: None)
  Receive Date: 20081217
  Receipt Date: 20081209
  Transmission Date: 20090506
  Serious: Yes (Life-Threatening, Hospitalization)
  Sender: FDA-Public Use
  Company Number: US-ELI_LILLY_AND_COMPANY-US200802006220

PATIENT
  Age: 24 Year
  Sex: Male

DRUGS (2)
  1. OLANZAPINE [Suspect]
     Route: 055
  2. MARIJUANA [Concomitant]
     Route: 055

REACTIONS (5)
  - AREFLEXIA [None]
  - DEPRESSED LEVEL OF CONSCIOUSNESS [None]
  - DRUG TOXICITY [None]
  - INTENTIONAL OVERDOSE [None]
  - SINUS TACHYCARDIA [None]
